FAERS Safety Report 10899622 (Version 1)
Quarter: 2015Q1

REPORT INFORMATION
  Report Type: Spontaneous
  Country: GB (occurrence: GB)
  Receive Date: 20150309
  Receipt Date: 20150309
  Transmission Date: 20150721
  Serious: Yes (Other)
  Sender: FDA-Public Use
  Company Number: PHHY2015GB024550

PATIENT
  Age: 12 Year
  Sex: Female
  Weight: 27.2 kg

DRUGS (6)
  1. METHYLPREDNISOLONE. [Suspect]
     Active Substance: METHYLPREDNISOLONE
     Indication: INFLAMMATORY MARKER INCREASED
     Dosage: 3 DF, UNK
     Route: 042
  2. PANCREATIC ENZYME REPLACEMENT THERAPY [Concomitant]
     Indication: PANCREATIC INSUFFICIENCY
     Route: 065
  3. PREDNISOLONE. [Suspect]
     Active Substance: PREDNISOLONE
     Indication: INFLAMMATORY MARKER INCREASED
     Route: 048
  4. INSULIN [Concomitant]
     Active Substance: INSULIN NOS
     Indication: DIABETES MELLITUS
     Route: 065
  5. ADALIMUMAB [Concomitant]
     Active Substance: ADALIMUMAB
     Indication: INFLAMMATORY MARKER INCREASED
     Dosage: 40 MG, QW2
     Route: 058
  6. ANAKINRA [Concomitant]
     Active Substance: ANAKINRA
     Indication: INFLAMMATORY MARKER INCREASED
     Route: 065

REACTIONS (2)
  - Body fat disorder [Unknown]
  - Lipodystrophy acquired [Unknown]
